FAERS Safety Report 15620611 (Version 2)
Quarter: 2020Q1

REPORT INFORMATION
  Report Type: Spontaneous
  Country: CA (occurrence: CA)
  Receive Date: 20181115
  Receipt Date: 20200313
  Transmission Date: 20200409
  Serious: Yes (Life-Threatening, Hospitalization, Other)
  Sender: FDA-Public Use
  Company Number: CA-TEVA-2018-CA-975882

PATIENT
  Sex: Female

DRUGS (82)
  1. METHOTREXATE. [Suspect]
     Active Substance: METHOTREXATE
     Route: 058
  2. PREDNISONE. [Suspect]
     Active Substance: PREDNISONE
     Indication: JUVENILE IDIOPATHIC ARTHRITIS
     Dosage: 10 MILLIGRAM DAILY;
     Route: 048
  3. PREDNISONE. [Suspect]
     Active Substance: PREDNISONE
     Indication: PRODUCT USED FOR UNKNOWN INDICATION
     Dosage: 2 DOSAGE FORMS DAILY;
     Route: 048
  4. PREDNISONE. [Suspect]
     Active Substance: PREDNISONE
     Dosage: 6 MILLIGRAM DAILY;
     Route: 048
  5. PREDNISONE. [Suspect]
     Active Substance: PREDNISONE
     Dosage: 6 MILLIGRAM DAILY;
     Route: 048
  6. ORENCIA [Suspect]
     Active Substance: ABATACEPT
     Indication: JUVENILE IDIOPATHIC ARTHRITIS
     Route: 042
  7. ORENCIA [Suspect]
     Active Substance: ABATACEPT
     Route: 042
  8. ORENCIA [Suspect]
     Active Substance: ABATACEPT
     Route: 042
  9. ACTEMRA [Suspect]
     Active Substance: TOCILIZUMAB
     Indication: STILL^S DISEASE
     Route: 042
  10. ACTEMRA [Suspect]
     Active Substance: TOCILIZUMAB
     Route: 065
  11. TRIAMCINOLONE [Suspect]
     Active Substance: TRIAMCINOLONE
     Route: 065
  12. ENBREL [Suspect]
     Active Substance: ETANERCEPT
     Route: 058
  13. TETANUS IMMUNE GLOBULIN (HUMAN) [Suspect]
     Active Substance: HUMAN CLOSTRIDIUM TETANI TOXOID IMMUNE GLOBULIN
     Route: 042
  14. HYDROXYCHLOROQUINE [Suspect]
     Active Substance: HYDROXYCHLOROQUINE
     Indication: JUVENILE IDIOPATHIC ARTHRITIS
  15. ANAKINRA [Suspect]
     Active Substance: ANAKINRA
     Indication: RHEUMATOID ARTHRITIS
  16. FOLIC ACID. [Concomitant]
     Active Substance: FOLIC ACID
     Indication: PRODUCT USED FOR UNKNOWN INDICATION
     Route: 065
  17. METHOTREXATE. [Suspect]
     Active Substance: METHOTREXATE
     Route: 065
  18. ORENCIA [Suspect]
     Active Substance: ABATACEPT
     Route: 042
  19. ORENCIA [Suspect]
     Active Substance: ABATACEPT
     Route: 042
  20. ORENCIA [Suspect]
     Active Substance: ABATACEPT
     Route: 065
  21. ACTEMRA [Suspect]
     Active Substance: TOCILIZUMAB
  22. ACTEMRA [Suspect]
     Active Substance: TOCILIZUMAB
     Route: 042
  23. TRIAMCINOLONE [Suspect]
     Active Substance: TRIAMCINOLONE
     Indication: RHEUMATOID ARTHRITIS
     Route: 014
  24. TRIAMCINOLONE [Suspect]
     Active Substance: TRIAMCINOLONE
     Route: 058
  25. INFLIXIMAB [Suspect]
     Active Substance: INFLIXIMAB
     Route: 042
  26. ENBREL [Suspect]
     Active Substance: ETANERCEPT
     Indication: PRODUCT USED FOR UNKNOWN INDICATION
     Route: 058
  27. HUMIRA [Suspect]
     Active Substance: ADALIMUMAB
     Route: 065
  28. APO-NAPROXEN [Suspect]
     Active Substance: NAPROXEN
     Indication: JUVENILE IDIOPATHIC ARTHRITIS
     Route: 065
  29. APO-NAPROXEN [Suspect]
     Active Substance: NAPROXEN
     Indication: RHEUMATOID ARTHRITIS
     Dosage: 6 MILLIGRAM DAILY;
     Route: 048
  30. GAMMAGARD LIQUID [Suspect]
     Active Substance: HUMAN IMMUNOGLOBULIN G
     Indication: JUVENILE IDIOPATHIC ARTHRITIS
     Route: 042
  31. FOLIC ACID. [Concomitant]
     Active Substance: FOLIC ACID
     Indication: PRODUCT USED FOR UNKNOWN INDICATION
  32. PREDNISONE. [Suspect]
     Active Substance: PREDNISONE
     Route: 065
  33. ENBREL [Suspect]
     Active Substance: ETANERCEPT
     Route: 058
  34. HUMIRA [Suspect]
     Active Substance: ADALIMUMAB
     Indication: JUVENILE IDIOPATHIC ARTHRITIS
     Route: 058
  35. HYDROXYCHLOROQUINE [Suspect]
     Active Substance: HYDROXYCHLOROQUINE
     Dosage: 5 MG/KG DAILY;
     Route: 048
  36. METHOTREXATE. [Suspect]
     Active Substance: METHOTREXATE
     Route: 058
  37. PREDNISONE. [Suspect]
     Active Substance: PREDNISONE
     Route: 065
  38. ORENCIA [Suspect]
     Active Substance: ABATACEPT
     Route: 042
  39. ORENCIA [Suspect]
     Active Substance: ABATACEPT
     Route: 042
  40. ACTEMRA [Suspect]
     Active Substance: TOCILIZUMAB
     Route: 065
  41. TRIAMCINOLONE [Suspect]
     Active Substance: TRIAMCINOLONE
     Indication: JUVENILE IDIOPATHIC ARTHRITIS
     Route: 065
  42. TRIAMCINOLONE [Suspect]
     Active Substance: TRIAMCINOLONE
     Indication: RHINITIS PERENNIAL
     Route: 050
  43. INFLIXIMAB [Suspect]
     Active Substance: INFLIXIMAB
     Indication: PRODUCT USED FOR UNKNOWN INDICATION
     Route: 042
  44. TETANUS IMMUNE GLOBULIN (HUMAN) [Suspect]
     Active Substance: HUMAN CLOSTRIDIUM TETANI TOXOID IMMUNE GLOBULIN
     Indication: JUVENILE IDIOPATHIC ARTHRITIS
     Route: 042
  45. METHOTREXATE. [Suspect]
     Active Substance: METHOTREXATE
     Route: 058
  46. PREDNISONE. [Suspect]
     Active Substance: PREDNISONE
     Dosage: 6 MILLIGRAM DAILY;
     Route: 048
  47. ORENCIA [Suspect]
     Active Substance: ABATACEPT
     Route: 042
  48. ACTEMRA [Suspect]
     Active Substance: TOCILIZUMAB
     Route: 042
  49. TRIAMCINOLONE [Suspect]
     Active Substance: TRIAMCINOLONE
     Indication: SEASONAL ALLERGY
     Route: 065
  50. ENBREL [Suspect]
     Active Substance: ETANERCEPT
     Indication: PRODUCT USED FOR UNKNOWN INDICATION
     Route: 065
  51. KINERET [Suspect]
     Active Substance: ANAKINRA
     Indication: JUVENILE IDIOPATHIC ARTHRITIS
     Dosage: 50 MILLIGRAM DAILY;
     Route: 058
  52. TETANUS IMMUNE GLOBULIN (HUMAN) [Suspect]
     Active Substance: HUMAN CLOSTRIDIUM TETANI TOXOID IMMUNE GLOBULIN
     Route: 042
  53. ANAKINRA [Suspect]
     Active Substance: ANAKINRA
     Indication: JUVENILE IDIOPATHIC ARTHRITIS
     Dosage: 50 MILLIGRAM DAILY;
     Route: 058
  54. PREDNISONE. [Suspect]
     Active Substance: PREDNISONE
     Dosage: 100 MILLIGRAM DAILY;
     Route: 065
  55. SULFASALAZINE. [Suspect]
     Active Substance: SULFASALAZINE
     Indication: JUVENILE IDIOPATHIC ARTHRITIS
     Dosage: 250 MILLIGRAM DAILY;
     Route: 048
  56. HYDROXYCHLOROQUINE SULFATE TABLETS, USP [Suspect]
     Active Substance: HYDROXYCHLOROQUINE SULFATE
     Indication: JUVENILE IDIOPATHIC ARTHRITIS
     Dosage: 5 MG/KG DAILY;
     Route: 048
  57. KINERET [Suspect]
     Active Substance: ANAKINRA
     Route: 058
  58. KINERET [Suspect]
     Active Substance: ANAKINRA
     Route: 058
  59. APO-NAPROXEN [Suspect]
     Active Substance: NAPROXEN
     Route: 065
  60. METHOTREXATE. [Suspect]
     Active Substance: METHOTREXATE
     Indication: JUVENILE IDIOPATHIC ARTHRITIS
     Route: 058
  61. METHOTREXATE. [Suspect]
     Active Substance: METHOTREXATE
     Route: 058
  62. METHOTREXATE. [Suspect]
     Active Substance: METHOTREXATE
     Route: 042
  63. ACTEMRA [Suspect]
     Active Substance: TOCILIZUMAB
     Route: 042
  64. ACTEMRA [Suspect]
     Active Substance: TOCILIZUMAB
     Route: 042
  65. TRIAMCINOLONE [Suspect]
     Active Substance: TRIAMCINOLONE
     Route: 065
  66. TRIAMCINOLONE [Suspect]
     Active Substance: TRIAMCINOLONE
     Route: 065
  67. INFLIXIMAB [Suspect]
     Active Substance: INFLIXIMAB
     Indication: JUVENILE IDIOPATHIC ARTHRITIS
     Route: 042
  68. INFLIXIMAB [Suspect]
     Active Substance: INFLIXIMAB
     Route: 058
  69. INFLIXIMAB [Suspect]
     Active Substance: INFLIXIMAB
     Route: 065
  70. ENBREL [Suspect]
     Active Substance: ETANERCEPT
     Indication: JUVENILE IDIOPATHIC ARTHRITIS
     Route: 058
  71. KINERET [Suspect]
     Active Substance: ANAKINRA
     Dosage: 50 MILLIGRAM DAILY;
     Route: 058
  72. PREDNISONE. [Suspect]
     Active Substance: PREDNISONE
     Indication: JUVENILE IDIOPATHIC ARTHRITIS
     Dosage: 6 MILLIGRAM DAILY;
     Route: 048
  73. TETANUS IMMUNE GLOBULIN (HUMAN) [Suspect]
     Active Substance: HUMAN CLOSTRIDIUM TETANI TOXOID IMMUNE GLOBULIN
     Indication: OFF LABEL USE
     Route: 042
  74. TETANUS IMMUNE GLOBULIN (HUMAN) [Suspect]
     Active Substance: HUMAN CLOSTRIDIUM TETANI TOXOID IMMUNE GLOBULIN
     Route: 042
  75. NAPROXEN. [Suspect]
     Active Substance: NAPROXEN
     Indication: JUVENILE IDIOPATHIC ARTHRITIS
     Route: 065
  76. PREDNISONE. [Suspect]
     Active Substance: PREDNISONE
     Dosage: 2.6 MILLIGRAM DAILY;
     Route: 048
  77. PREDNISONE. [Suspect]
     Active Substance: PREDNISONE
     Dosage: 2.6 MILLIGRAM DAILY;
     Route: 048
  78. PREDNISONE. [Suspect]
     Active Substance: PREDNISONE
     Dosage: 10 MILLIGRAM DAILY;
     Route: 048
  79. ACTEMRA [Suspect]
     Active Substance: TOCILIZUMAB
     Indication: JUVENILE IDIOPATHIC ARTHRITIS
     Route: 042
  80. GAMASTAN S/D [Suspect]
     Active Substance: HUMAN IMMUNOGLOBULIN A\HUMAN IMMUNOGLOBULIN G
     Indication: JUVENILE IDIOPATHIC ARTHRITIS
     Route: 042
  81. ENBREL [Suspect]
     Active Substance: ETANERCEPT
     Indication: RHEUMATOID ARTHRITIS
     Route: 058
  82. HYDROXYCHLOROQUINE [Suspect]
     Active Substance: HYDROXYCHLOROQUINE
     Indication: PRODUCT USED FOR UNKNOWN INDICATION
     Dosage: 5 MILLIGRAM DAILY;
     Route: 048

REACTIONS (52)
  - C-reactive protein increased [Unknown]
  - Impaired quality of life [Unknown]
  - Arthralgia [Unknown]
  - Polyarthritis [Unknown]
  - Vomiting [Unknown]
  - Contraindicated product administered [Unknown]
  - Nausea [Unknown]
  - Drug intolerance [Unknown]
  - Joint effusion [Unknown]
  - Therapeutic product effect decreased [Unknown]
  - Underdose [Unknown]
  - Quality of life decreased [Unknown]
  - Adrenal insufficiency [Unknown]
  - Drug ineffective [Unknown]
  - Red blood cell sedimentation rate increased [Unknown]
  - Loss of consciousness [Unknown]
  - Rheumatoid arthritis [Unknown]
  - Wheelchair user [Unknown]
  - Product use issue [Unknown]
  - Product use in unapproved indication [Unknown]
  - Body height below normal [Unknown]
  - Mobility decreased [Not Recovered/Not Resolved]
  - Hypokalaemia [Unknown]
  - Liver function test abnormal [Unknown]
  - Pleural effusion [Unknown]
  - Drug specific antibody present [Unknown]
  - Antibody test positive [Unknown]
  - Bone density decreased [Unknown]
  - Condition aggravated [Unknown]
  - Diarrhoea [Unknown]
  - Septic shock [Unknown]
  - Joint injury [Unknown]
  - Prescribed underdose [Unknown]
  - Drug specific antibody [Unknown]
  - Arthritis [Unknown]
  - Human antichimeric antibody positive [Unknown]
  - Obesity [Unknown]
  - Off label use [Unknown]
  - Arthropathy [Not Recovered/Not Resolved]
  - Hypocalcaemia [Unknown]
  - Hypotension [Unknown]
  - Joint destruction [Unknown]
  - Therapy non-responder [Unknown]
  - Gastroenteritis viral [Unknown]
  - Human anti-human antibody test [Unknown]
  - Juvenile idiopathic arthritis [Unknown]
  - Loss of personal independence in daily activities [Unknown]
  - Psoriasis [Unknown]
  - Synovitis [Unknown]
  - Dizziness [Unknown]
  - Immunodeficiency [Unknown]
  - Pyrexia [Unknown]
